FAERS Safety Report 6546403-0 (Version None)
Quarter: 2010Q1

REPORT INFORMATION
  Report Type: 
  Country: None (occurrence: None)
  Receive Date: 20100114
  Receipt Date: 20091117
  Transmission Date: 20100710
  Serious: No
  Sender: FDA-Public Use
  Company Number: 2009BM000318

PATIENT
  Age: 30 Year
  Sex: Female
  Weight: 52.6173 kg

DRUGS (3)
  1. KUVAN [Suspect]
     Indication: HYPOTENSION
     Dosage: 100 MG;QD;PO
     Route: 048
     Dates: start: 20090801, end: 20090801
  2. FISH OIL [Concomitant]
  3. GRAPE SEED EXTRACT /01364602/ [Concomitant]

REACTIONS (3)
  - ABNORMAL DREAMS [None]
  - BLOOD PRESSURE DECREASED [None]
  - HYPOAESTHESIA [None]
